FAERS Safety Report 26088079 (Version 1)
Quarter: 2025Q4

REPORT INFORMATION
  Report Type: Spontaneous
  Country: JP (occurrence: JP)
  Receive Date: 20251125
  Receipt Date: 20251125
  Transmission Date: 20260118
  Serious: Yes (Life-Threatening, Other)
  Sender: PHARMOBEDIENT CONSULTING, LLC
  Company Number: JP-Pharmobedient-000525

PATIENT
  Age: 2 Year
  Sex: Male

DRUGS (9)
  1. CARBOPLATIN [Suspect]
     Active Substance: CARBOPLATIN
     Indication: Neurofibromatosis
     Dosage: 5 CYCLES
     Dates: start: 2015
  2. CISPLATIN [Suspect]
     Active Substance: CISPLATIN
     Indication: Neurofibromatosis
     Dosage: FIVE CYCLE
     Dates: start: 2015
  3. IFOSFAMIDE [Suspect]
     Active Substance: IFOSFAMIDE
     Indication: Neurofibromatosis
     Dosage: 5 CYCLE
     Dates: start: 2015
  4. CYCLOPHOSPHAMIDE [Suspect]
     Active Substance: CYCLOPHOSPHAMIDE
     Indication: Neurofibromatosis
     Dosage: FIVE CYCLES
     Dates: start: 2015
  5. ETOPOSIDE [Suspect]
     Active Substance: ETOPOSIDE
     Indication: Neurofibromatosis
     Dosage: FIVE CYCLES
     Dates: start: 2015
  6. VINCRISTINE [Suspect]
     Active Substance: VINCRISTINE
     Indication: Neurofibromatosis
     Dosage: FIVE CYCLES
     Dates: start: 2015
  7. MELPHALAN [Suspect]
     Active Substance: MELPHALAN
     Indication: Neurofibromatosis
     Dosage: HIGH DOSE
  8. ETOPOSIDE [Suspect]
     Active Substance: ETOPOSIDE
     Indication: Neurofibromatosis
     Dosage: HIGH DOSE
  9. CARBOPLATIN [Suspect]
     Active Substance: CARBOPLATIN
     Indication: Neurofibromatosis
     Dosage: HIGH DOSE

REACTIONS (4)
  - Neutropenia [Unknown]
  - Aspartate aminotransferase increased [Unknown]
  - Alanine aminotransferase increased [Unknown]
  - Stomatitis [Recovered/Resolved]
